FAERS Safety Report 23219092 (Version 2)
Quarter: 2023Q4

REPORT INFORMATION
  Report Type: Spontaneous
  Country: CN (occurrence: None)
  Receive Date: 20231122
  Receipt Date: 20231215
  Transmission Date: 20240110
  Serious: Yes (Hospitalization, Other)
  Sender: FDA-Public Use
  Company Number: 2023A262255

PATIENT
  Age: 48 Year
  Sex: Male

DRUGS (2)
  1. GEFITINIB [Suspect]
     Active Substance: GEFITINIB
     Indication: Non-small cell lung cancer
     Route: 048
  2. FURMONERTINIB [Concomitant]
     Dosage: 160 MG/DAY
     Route: 048

REACTIONS (6)
  - Metastases to meninges [Recovered/Resolved]
  - Malignant neoplasm progression [Recovered/Resolved]
  - Drug resistance [Unknown]
  - Transaminases increased [Unknown]
  - Dyspepsia [Unknown]
  - Rash [Unknown]

NARRATIVE: CASE EVENT DATE: 20211101
